FAERS Safety Report 13235821 (Version 14)
Quarter: 2021Q1

REPORT INFORMATION
  Report Type: Spontaneous
  Country: ES (occurrence: ES)
  Receive Date: 20170215
  Receipt Date: 20210118
  Transmission Date: 20210419
  Serious: Yes (Other)
  Sender: FDA-Public Use
  Company Number: ES-009507513-1504ESP015346

PATIENT
  Age: 45 Year
  Sex: Female
  Weight: 90 kg

DRUGS (14)
  1. CUBICIN [Suspect]
     Active Substance: DAPTOMYCIN
     Indication: DEVICE RELATED INFECTION
     Dosage: 8 MG/KG, DAILY || FREQUENCY DOSE UNIT: 560 MG?MILLIGRAMS || DOSE PER INTAKE: 560 MG?MILLIGRAMS || NU
     Route: 042
     Dates: start: 20140617, end: 20140729
  2. CUBICIN [Suspect]
     Active Substance: DAPTOMYCIN
     Indication: OFF LABEL USE
  3. STATIN (NYSTATIN) [Concomitant]
     Active Substance: NYSTATIN
     Indication: PRODUCT USED FOR UNKNOWN INDICATION
     Dosage: UNK UNK, UNK
     Route: 065
  4. STATIN (NYSTATIN) [Concomitant]
     Active Substance: NYSTATIN
     Dosage: UNK UNK, UNK
     Route: 065
  5. LORMETAZEPAM [Concomitant]
     Active Substance: LORMETAZEPAM
     Indication: ANXIETY
     Dosage: || FREQUENCY DOSE UNIT: 1 MG?MILLIGRAMS || DOSE PER INTAKE 1 MG?MILLIGRAMS || NUMBER OF INTAKE PER F
     Route: 048
  6. PAROXETINE. [Concomitant]
     Active Substance: PAROXETINE
     Dosage: UNK UNK, UNK
     Route: 065
  7. CUBICIN [Suspect]
     Active Substance: DAPTOMYCIN
     Indication: STAPHYLOCOCCAL INFECTION
  8. ENOXAPARIN SODIUM. [Concomitant]
     Active Substance: ENOXAPARIN SODIUM
     Indication: PROPHYLAXIS
     Dosage: || FREQUENCY DOSE UNIT: 60 MG?MILLIGRAMS || DOSE PER INTAKE: 60 MG?MILLIGRAMS || NUMBER OF INTAKE PE
     Route: 058
  9. CUBICIN [Suspect]
     Active Substance: DAPTOMYCIN
     Indication: STAPHYLOCOCCAL INFECTION
     Dosage: UNK
  10. CUBICIN [Suspect]
     Active Substance: DAPTOMYCIN
     Indication: DEVICE RELATED INFECTION
  11. PAROXETINE. [Concomitant]
     Active Substance: PAROXETINE
     Indication: PRODUCT USED FOR UNKNOWN INDICATION
     Dosage: UNK UNK, UNK
     Route: 065
  12. SEROTONIN [Concomitant]
     Active Substance: SEROTONIN
     Indication: PRODUCT USED FOR UNKNOWN INDICATION
     Dosage: UNK UNK, UNK
     Route: 065
  13. SEROTONIN [Concomitant]
     Active Substance: SEROTONIN
     Dosage: UNK UNK, UNK
     Route: 065
  14. TRAMADOL HYDROCHLORIDE. [Concomitant]
     Active Substance: TRAMADOL HYDROCHLORIDE
     Indication: PAIN
     Dosage: || FREQUENCY DOSE UNIT: 150 MG?MILLIGRAMS || DOSE PER INTAKE: 50 MG?MILLIGRAMS || NUMBER OF INTAKE P
     Route: 048

REACTIONS (5)
  - Off label use [Unknown]
  - Hypoalbuminaemia [Unknown]
  - Blood creatine phosphokinase increased [Recovered/Resolved]
  - Rhabdomyolysis [Recovered/Resolved]
  - Drug interaction [Unknown]

NARRATIVE: CASE EVENT DATE: 20140728
